FAERS Safety Report 8601598-X (Version None)
Quarter: 2012Q3

REPORT INFORMATION
  Report Type: 
  Country: None (occurrence: None)
  Receive Date: 20120817
  Receipt Date: 20120416
  Transmission Date: 20120928
  Serious: No
  Sender: FDA-Public Use
  Company Number: US-BRISTOL-MYERS SQUIBB COMPANY-16292971

PATIENT
  Age: 42 Year
  Sex: Female
  Weight: 102 kg

DRUGS (3)
  1. SPRYCEL [Suspect]
     Indication: CHRONIC MYELOID LEUKAEMIA
     Dates: start: 20111101
  2. VALIUM [Concomitant]
  3. LYRICA [Concomitant]

REACTIONS (3)
  - FATIGUE [None]
  - COUGH [None]
  - RESPIRATORY TRACT CONGESTION [None]
